FAERS Safety Report 6678188-1 (Version None)
Quarter: 2010Q2

REPORT INFORMATION
  Report Type: 
  Country: None (occurrence: None)
  Receive Date: 20100408
  Receipt Date: 20100408
  Transmission Date: 20101027
  Serious: Yes (Hospitalization)
  Sender: FDA-Public Use
  Company Number: None

PATIENT
  Age: 75 Year
  Sex: Male
  Weight: 92.5338 kg

DRUGS (5)
  1. METHOTREXATE [Suspect]
     Indication: BLADDER CANCER
     Dosage: EACH CYCLE IS 2 WEEKS
     Route: 042
     Dates: start: 20100302
  2. VINBLASTINE SULFATE [Suspect]
     Indication: BLADDER CANCER
     Dosage: EACH CYCLE IS 2 WEEKS
     Route: 042
     Dates: start: 20100316
  3. VINBLASTINE SULFATE [Suspect]
     Indication: BLADDER CANCER
     Dosage: EACH CYCLE IS 2 WEEKS
     Route: 042
     Dates: start: 20100406
  4. DOXORUBICIN HCL [Suspect]
     Dosage: EACH CYCLE IS 2 WEEKS
     Route: 042
  5. CISPLATIN [Suspect]
     Route: 042

REACTIONS (4)
  - BODY TEMPERATURE INCREASED [None]
  - CULTURE URINE POSITIVE [None]
  - MEDICAL DEVICE COMPLICATION [None]
  - URINARY TRACT INFECTION [None]
